FAERS Safety Report 7423147-4 (Version None)
Quarter: 2011Q2

REPORT INFORMATION
  Report Type: 
  Country: None (occurrence: None)
  Receive Date: 20110419
  Receipt Date: 20110412
  Transmission Date: 20111010
  Serious: Yes (Hospitalization, Other)
  Sender: FDA-Public Use
  Company Number: US-ROCHE-460922

PATIENT
  Sex: Female
  Weight: 66.7 kg

DRUGS (2)
  1. CONTRACEPTIVE [Concomitant]
     Indication: CONTRACEPTION
     Route: 048
  2. ACCUTANE [Suspect]
     Indication: ACNE
     Dosage: TOOK IN 1982 FOR 6-12 MONTHS.
     Route: 048
     Dates: start: 19820101

REACTIONS (26)
  - ARTHRITIS [None]
  - INJURY [None]
  - PROCTITIS [None]
  - VAGINAL POLYP [None]
  - NEPHROLITHIASIS [None]
  - INFLAMMATORY BOWEL DISEASE [None]
  - COLITIS [None]
  - GASTROINTESTINAL HAEMORRHAGE [None]
  - ANAEMIA [None]
  - CALCULUS URETERIC [None]
  - PROCTOCOLITIS [None]
  - CERVICAL POLYP [None]
  - BARTHOLIN'S ABSCESS [None]
  - HEPATIC CYST [None]
  - BLEPHARITIS [None]
  - OSTEOPENIA [None]
  - PNEUMONIA [None]
  - VENOUS THROMBOSIS [None]
  - DEEP VEIN THROMBOSIS [None]
  - LUNG NEOPLASM [None]
  - BACK PAIN [None]
  - DYSFUNCTIONAL UTERINE BLEEDING [None]
  - ANXIETY [None]
  - HYDROURETER [None]
  - COLITIS ULCERATIVE [None]
  - HYDRONEPHROSIS [None]
